FAERS Safety Report 17368787 (Version 2)
Quarter: 2020Q2

REPORT INFORMATION
  Report Type: Spontaneous
  Country: US (occurrence: US)
  Receive Date: 20200204
  Receipt Date: 20200521
  Transmission Date: 20200713
  Serious: No
  Sender: FDA-Public Use
  Company Number: US-009507513-2002USA001209

PATIENT

DRUGS (2)
  1. NOXAFIL [Suspect]
     Active Substance: POSACONAZOLE
     Indication: ANTIFUNGAL PROPHYLAXIS
     Dosage: 300 MILLIGRAM, DR TABLETS ORALLY ONCE DAILY (POST-JULY 2017)
     Route: 048
  2. BUSULFAN. [Interacting]
     Active Substance: BUSULFAN
     Dosage: UNK

REACTIONS (2)
  - Treatment failure [Unknown]
  - Drug interaction [Unknown]
